FAERS Safety Report 25334710 (Version 1)
Quarter: 2025Q2

REPORT INFORMATION
  Report Type: Spontaneous
  Country: NL (occurrence: NL)
  Receive Date: 20250520
  Receipt Date: 20250520
  Transmission Date: 20250716
  Serious: Yes (Other)
  Sender: TEVA
  Company Number: None

PATIENT
  Age: 13 Year
  Sex: Male
  Weight: 75 kg

DRUGS (1)
  1. LISDEXAMFETAMINE [Suspect]
     Active Substance: LISDEXAMFETAMINE
     Indication: Attention deficit hyperactivity disorder
     Dosage: 1 DAY 1 PIECE, BRAND NAME NOT SPECIFIED
     Route: 048
     Dates: start: 20231223

REACTIONS (1)
  - Blood creatine phosphokinase increased [Recovering/Resolving]
